FAERS Safety Report 16818591 (Version 1)
Quarter: 2019Q3

REPORT INFORMATION
  Report Type: Spontaneous
  Country: US (occurrence: US)
  Receive Date: 20190917
  Receipt Date: 20190917
  Transmission Date: 20191005
  Serious: No
  Sender: FDA-Public Use
  Company Number: US-009507513-1909USA005992

PATIENT
  Age: 57 Year
  Sex: Female

DRUGS (1)
  1. INTRON A [Suspect]
     Active Substance: INTERFERON ALFA-2B
     Indication: PLEURAL MESOTHELIOMA
     Dosage: 18 MIU 3ML MDV, INJECT 750,000 UNITS (12.5 UNITS ON SYRINGE)DAILY
     Route: 058
     Dates: start: 20170419

REACTIONS (1)
  - Product dose omission [Unknown]

NARRATIVE: CASE EVENT DATE: 20190915
